FAERS Safety Report 7922862 (Version 4)
Quarter: 2013Q4

REPORT INFORMATION
  Report Type: Spontaneous
  Country: US (occurrence: US)
  Receive Date: 20110429
  Receipt Date: 20131128
  Transmission Date: 20140711
  Serious: Yes (Hospitalization)
  Sender: FDA-Public Use
  Company Number: US-ASTRAZENECA-2010SE10633

PATIENT
  Age: 52 Year
  Sex: Female
  Weight: 83.9 kg

DRUGS (16)
  1. NEXIUM [Suspect]
     Indication: GASTROOESOPHAGEAL REFLUX DISEASE
     Route: 048
     Dates: start: 20060330
  2. NEXIUM [Suspect]
     Indication: GASTROOESOPHAGEAL REFLUX DISEASE
     Route: 048
     Dates: start: 20090303
  3. ROLAIDS [Concomitant]
  4. METAMUCIL [Concomitant]
  5. MIRALAX [Concomitant]
  6. ALKA SEITZER [Concomitant]
  7. TYLENOL [Concomitant]
  8. ASPIRIN [Concomitant]
  9. PROMETHAZINE [Concomitant]
     Dates: start: 20060418
  10. METRONIDAZOLE [Concomitant]
     Dosage: 500 M
     Dates: start: 20060418
  11. CIPROFLOX [Concomitant]
     Dosage: 500 M
     Dates: start: 20060418
  12. PREMPRO [Concomitant]
     Dosage: 0.3/1.5 MG DAILY
     Dates: start: 20060330
  13. CYMBALTA [Concomitant]
     Dates: start: 20060330
  14. ULTRAM [Concomitant]
     Indication: PAIN
  15. BACLOFEN [Concomitant]
  16. NAPROXEN [Concomitant]
     Dosage: 1 TO 2 TAB BID

REACTIONS (14)
  - Back pain [Unknown]
  - Pain in extremity [Unknown]
  - Blood pressure abnormal [Unknown]
  - Osteoporosis [Unknown]
  - Dyspepsia [Unknown]
  - Multiple fractures [Unknown]
  - Arthropathy [Unknown]
  - Ligament sprain [Unknown]
  - Arthritis [Unknown]
  - Sciatica [Unknown]
  - Abdominal discomfort [Unknown]
  - Abdominal pain [Unknown]
  - Depression [Unknown]
  - Drug dose omission [Unknown]
